FAERS Safety Report 9281880 (Version 3)
Quarter: 2013Q3

REPORT INFORMATION
  Report Type: Spontaneous
  Country: ES (occurrence: ES)
  Receive Date: 20130510
  Receipt Date: 20130718
  Transmission Date: 20140515
  Serious: Yes (Other)
  Sender: FDA-Public Use
  Company Number: ES-009507513-1305ESP000345

PATIENT
  Age: 56 Year
  Sex: Male

DRUGS (1)
  1. EZETROL [Suspect]
     Indication: BLOOD CHOLESTEROL INCREASED
     Dosage: 10 MG, QPM
     Route: 048
     Dates: start: 201302

REACTIONS (3)
  - Inguinal hernia [Unknown]
  - Coagulopathy [Not Recovered/Not Resolved]
  - Muscle spasms [Unknown]
